FAERS Safety Report 16840314 (Version 1)
Quarter: 2019Q3

REPORT INFORMATION
  Report Type: Spontaneous
  Country: FR (occurrence: FR)
  Receive Date: 20190923
  Receipt Date: 20190923
  Transmission Date: 20191005
  Serious: Yes (Death, Other)
  Sender: FDA-Public Use
  Company Number: PHHY2019FR218571

PATIENT

DRUGS (9)
  1. ARACYTINE [Suspect]
     Active Substance: CYTARABINE
     Indication: SARCOMA
  2. ZELITREX [Suspect]
     Active Substance: VALACYCLOVIR HYDROCHLORIDE
     Indication: PROPHYLAXIS
     Dosage: 500 MG, UNK
     Route: 048
  3. ESOMEPRAZOLE MAGNESIUM. [Concomitant]
     Active Substance: ESOMEPRAZOLE MAGNESIUM
     Indication: GASTROOESOPHAGEAL REFLUX PROPHYLAXIS
     Dosage: 40 MG, UNK
     Route: 048
  4. LEVOFLOXACIN. [Suspect]
     Active Substance: LEVOFLOXACIN
     Indication: DISEASE PROGRESSION
     Dosage: UNK
     Route: 065
  5. ARACYTINE [Suspect]
     Active Substance: CYTARABINE
     Indication: DISEASE PROGRESSION
     Dosage: UNK
     Route: 065
  6. DEFITELIO [Suspect]
     Active Substance: DEFIBROTIDE SODIUM
     Indication: PROPHYLAXIS
     Dosage: 25 MG/KG, QD (25 MG/KG/DAY)
     Route: 042
     Dates: start: 20171220, end: 20180106
  7. LEVOFLOXACIN. [Suspect]
     Active Substance: LEVOFLOXACIN
     Indication: SARCOMA
  8. AMOXICILLIN. [Concomitant]
     Active Substance: AMOXICILLIN
     Indication: INFECTION PROPHYLAXIS
     Dosage: UNK
     Route: 048
     Dates: start: 20171218, end: 20171229
  9. BACTRIM [Concomitant]
     Active Substance: SULFAMETHOXAZOLE\TRIMETHOPRIM
     Indication: INFECTION PROPHYLAXIS
     Dosage: UNK
     Route: 048

REACTIONS (6)
  - Escherichia sepsis [Recovered/Resolved]
  - Staphylococcal infection [Recovered/Resolved]
  - Sarcoma [Fatal]
  - Dermatitis bullous [Recovered/Resolved]
  - Disease progression [Fatal]
  - Intentional product use issue [Unknown]

NARRATIVE: CASE EVENT DATE: 20171220
